FAERS Safety Report 19963297 (Version 5)
Quarter: 2021Q4

REPORT INFORMATION
  Report Type: Spontaneous
  Country: JP (occurrence: JP)
  Receive Date: 20211018
  Receipt Date: 20211207
  Transmission Date: 20220303
  Serious: Yes (Hospitalization)
  Sender: FDA-Public Use
  Company Number: JP-ELI_LILLY_AND_COMPANY-JP202110003161

PATIENT
  Age: 44 Year
  Sex: Female

DRUGS (4)
  1. VERZENIO [Suspect]
     Active Substance: ABEMACICLIB
     Indication: Breast cancer recurrent
     Dosage: UNK
     Route: 048
     Dates: start: 20210303
  2. FULVESTRANT [Suspect]
     Active Substance: FULVESTRANT
     Indication: Breast cancer recurrent
     Dosage: UNK
     Route: 030
     Dates: start: 20210303
  3. DENOSUMAB [Suspect]
     Active Substance: DENOSUMAB
     Indication: Breast cancer recurrent
     Dosage: UNK
     Route: 058
     Dates: start: 20210303
  4. LEUPLIN [Suspect]
     Active Substance: LEUPROLIDE ACETATE
     Indication: Breast cancer recurrent
     Dosage: UNK
     Route: 058
     Dates: start: 20210303

REACTIONS (2)
  - COVID-19 pneumonia [Recovered/Resolved]
  - Diarrhoea [Recovering/Resolving]

NARRATIVE: CASE EVENT DATE: 20210101
